FAERS Safety Report 8316294-6 (Version None)
Quarter: 2012Q2

REPORT INFORMATION
  Report Type: 
  Country: None (occurrence: None)
  Receive Date: 20120427
  Receipt Date: 20120423
  Transmission Date: 20120825
  Serious: No
  Sender: FDA-Public Use
  Company Number: US-PFIZER INC-2012100784

PATIENT
  Sex: Female
  Weight: 58.503 kg

DRUGS (8)
  1. PREMARIN [Suspect]
     Dosage: 1.25 MG, DAILY
     Route: 048
  2. PREMARIN [Suspect]
     Dosage: 0.45 MG, DAILY
     Route: 048
     Dates: start: 20110101
  3. PREMARIN [Suspect]
     Dosage: 2.5 MG, DAILY
     Route: 048
  4. ZEBETA [Concomitant]
     Indication: CARDIAC DISORDER
     Dosage: 2.5 MG, DAILY
  5. PREMARIN [Suspect]
     Indication: HYSTERECTOMY
     Dosage: 1.25 MG, DAILY
     Route: 048
     Dates: start: 19780101
  6. PREMARIN [Suspect]
     Dosage: 0.9 MG, DAILY
     Route: 048
  7. PREMARIN [Suspect]
     Dosage: 0.625 MG, DAILY
     Route: 048
  8. CRESTOR [Concomitant]
     Indication: BLOOD CHOLESTEROL INCREASED
     Dosage: 10 MG, DAILY

REACTIONS (4)
  - ACTIVITIES OF DAILY LIVING IMPAIRED [None]
  - HEADACHE [None]
  - HOT FLUSH [None]
  - HYPERHIDROSIS [None]
